FAERS Safety Report 18746591 (Version 1)
Quarter: 2021Q1

REPORT INFORMATION
  Report Type: Spontaneous
  Country: US (occurrence: US)
  Receive Date: 20210114
  Receipt Date: 20210114
  Transmission Date: 20210419
  Serious: Yes (Death)
  Sender: FDA-Public Use
  Company Number: None

PATIENT
  Age: 75 Year
  Sex: Male

DRUGS (15)
  1. CLOPIDOGREL [Concomitant]
     Active Substance: CLOPIDOGREL BISULFATE
  2. METHYLPHENID [Concomitant]
     Active Substance: METHYLPHENIDATE
  3. CARVEDILOL. [Concomitant]
     Active Substance: CARVEDILOL
  4. IBUPROFEN. [Concomitant]
     Active Substance: IBUPROFEN
  5. LEVETIRACETA [Concomitant]
     Active Substance: LEVETIRACETAM
  6. LEVETIRACETA SOL [Concomitant]
  7. LORATIDINE [Concomitant]
     Active Substance: LORATADINE
  8. LORAZEPAM. [Concomitant]
     Active Substance: LORAZEPAM
  9. PANTOPRAZOLE [Concomitant]
     Active Substance: PANTOPRAZOLE
  10. PHENYTOIN. [Concomitant]
     Active Substance: PHENYTOIN
  11. PREDNISONE. [Concomitant]
     Active Substance: PREDNISONE
  12. TEMOZOLOMIDE 100MG CAP [Suspect]
     Active Substance: TEMOZOLOMIDE
     Indication: BRAIN NEOPLASM MALIGNANT
     Dosage: ?          OTHER ROUTE:PO?D15 OF 28D CYCLE?
     Dates: start: 20190906, end: 20210112
  13. GENTLE LAXAT [Concomitant]
  14. PHENYTOIN EX [Concomitant]
  15. SERTRALINE [Concomitant]
     Active Substance: SERTRALINE HYDROCHLORIDE

REACTIONS (1)
  - Death [None]

NARRATIVE: CASE EVENT DATE: 20210112
